FAERS Safety Report 4350523-9 (Version None)
Quarter: 2004Q2

REPORT INFORMATION
  Report Type: 
  Country: None (occurrence: None)
  Receive Date: 20040429
  Receipt Date: 20040429
  Transmission Date: 20050107
  Serious: Yes (Disabling, Other)
  Sender: FDA-Public Use
  Company Number: None

PATIENT
  Sex: Male
  Weight: 131.5431 kg

DRUGS (2)
  1. ALLEGRA [Suspect]
     Indication: SINUS CONGESTION
  2. ALLEGRA [Suspect]
     Indication: SINUSITIS

REACTIONS (1)
  - BACK PAIN [None]
